FAERS Safety Report 6804400-1 (Version None)
Quarter: 2010Q2

REPORT INFORMATION
  Report Type: 
  Country: None (occurrence: None)
  Receive Date: 20100628
  Receipt Date: 20060822
  Transmission Date: 20101027
  Serious: No
  Sender: FDA-Public Use
  Company Number: US-PFIZER INC-2007020657

PATIENT
  Sex: Female

DRUGS (3)
  1. XALATAN [Suspect]
     Indication: GLAUCOMA
     Dosage: 1 DROP EVERY BEDTIME IN LEFT EYE
     Route: 047
  2. BETIMOL [Concomitant]
     Route: 047
  3. AZOPT [Concomitant]
     Route: 047

REACTIONS (2)
  - EYE IRRITATION [None]
  - INCORRECT DOSE ADMINISTERED [None]
